FAERS Safety Report 8801302 (Version 2)
Quarter: 2012Q4

REPORT INFORMATION
  Report Type: 
  Country: NL (occurrence: NL)
  Receive Date: 20120921
  Receipt Date: 20121022
  Transmission Date: 20130627
  Serious: Yes (Other)
  Sender: FDA-Public Use
  Company Number: NL-ROCHE-1132482

PATIENT
  Age: 44 Year
  Sex: Female

DRUGS (2)
  1. AVASTIN [Suspect]
     Indication: BREAST CANCER METASTATIC
     Route: 042
     Dates: start: 20120209, end: 20120305
  2. PACLITAXEL [Suspect]
     Indication: BREAST CANCER METASTATIC
     Route: 065
     Dates: start: 20120209

REACTIONS (1)
  - Ejection fraction decreased [Unknown]
